FAERS Safety Report 9782135 (Version 2)
Quarter: 2014Q1

REPORT INFORMATION
  Report Type: Spontaneous
  Country: IT (occurrence: IT)
  Receive Date: 20131226
  Receipt Date: 20140206
  Transmission Date: 20141002
  Serious: Yes (Hospitalization)
  Sender: FDA-Public Use
  Company Number: IT-BRISTOL-MYERS SQUIBB COMPANY-19924463

PATIENT
  Age: 85 Year
  Sex: Female
  Weight: 80 kg

DRUGS (5)
  1. COUMADIN TABS 5 MG [Suspect]
     Indication: ATRIAL FIBRILLATION
     Dosage: 1 DF= 1 UNIT?INTERRUPTED ON 31OCT2013
     Route: 048
     Dates: start: 20100101
  2. AMLODIPINE BESYLATE [Concomitant]
     Route: 048
  3. QUINAPRIL HCL + HCTZ [Concomitant]
     Dosage: 1 DF = 1 UNIT
     Route: 048
  4. CARDURA [Concomitant]
     Dosage: 1 DF= 1 UNIT ?2 MG TABS
     Route: 048
  5. TAVOR [Concomitant]
     Dosage: 2.5 MG TABS
     Route: 048

REACTIONS (4)
  - Gastric ulcer [Recovering/Resolving]
  - Gastritis erosive [Recovering/Resolving]
  - International normalised ratio increased [Recovering/Resolving]
  - Anaemia [Recovering/Resolving]
